FAERS Safety Report 7839722 (Version 2)
Quarter: 2013Q2

REPORT INFORMATION
  Report Type: Spontaneous
  Country: US (occurrence: None)
  Receive Date: 20110128
  Receipt Date: 20130531
  Transmission Date: 20140414
  Serious: Yes (Other)
  Sender: FDA-Public Use
  Company Number: 2009-0025

PATIENT
  Age: 13 Year
  Sex: Male

DRUGS (3)
  1. INCRELEX [Suspect]
     Indication: BODY HEIGHT BELOW NORMAL
     Dosage: 84 UNITS (42 UNITS,2 IN 1 D), SUBCUTANEOUS
     Route: 058
     Dates: start: 20080317, end: 20081010
  2. INCRELEX [Suspect]
     Indication: OFF LABEL USE
     Dosage: 84 UNITS (42 UNITS,2 IN 1 D), SUBCUTANEOUS
     Route: 058
     Dates: start: 20080317, end: 20081010
  3. GENOTROPIN [Concomitant]

REACTIONS (4)
  - HEADACHE [None]
  - EYE SWELLING [None]
  - NASAL CONGESTION [None]
  - CONDITION AGGRAVATED [None]
